FAERS Safety Report 9551453 (Version 1)
Quarter: 2013Q3

REPORT INFORMATION
  Report Type: Spontaneous
  Country: US (occurrence: None)
  Receive Date: 20130724
  Receipt Date: 20130724
  Transmission Date: 20140515
  Serious: Yes (Other)
  Sender: FDA-Public Use
  Company Number: PHEH2013US006290

PATIENT
  Sex: 0

DRUGS (1)
  1. GLEEVEC (IMATINIB) UNKNOWN [Suspect]
     Dosage: , ORAL

REACTIONS (1)
  - Angioedema [None]
